FAERS Safety Report 14909390 (Version 1)
Quarter: 2018Q2

REPORT INFORMATION
  Report Type: Spontaneous
  Country: US (occurrence: US)
  Receive Date: 20180517
  Receipt Date: 20180517
  Transmission Date: 20180711
  Serious: No
  Sender: FDA-Public Use
  Company Number: US-BAYER-2018-087326

PATIENT
  Age: 72 Year
  Sex: Female
  Weight: 72.97 kg

DRUGS (7)
  1. ALEVE [Suspect]
     Active Substance: NAPROXEN SODIUM
     Dosage: 1 TABLET ONCE DAILY
     Route: 048
     Dates: start: 201803, end: 20180430
  2. CALCIMAX [CALCIUM CITRATE] [Concomitant]
  3. BAYER LOW DOSE [Concomitant]
     Active Substance: ASPIRIN
     Dosage: 1 TABLET ONCE DAILY
     Route: 048
     Dates: start: 2016
  4. CENTRUM SILVER [Concomitant]
     Active Substance: MINERALS\VITAMINS
  5. ALEVE [Suspect]
     Active Substance: NAPROXEN SODIUM
     Dosage: 1 TABLET ONCE DAILY
     Route: 048
     Dates: start: 201802
  6. VITAMIN D [Concomitant]
     Active Substance: CHOLECALCIFEROL
  7. B COMPLEX [B3,B6,B2,B1 HCL] [Concomitant]

REACTIONS (2)
  - Drug ineffective [Unknown]
  - Product use issue [Unknown]

NARRATIVE: CASE EVENT DATE: 201802
